FAERS Safety Report 15472381 (Version 1)
Quarter: 2018Q4

REPORT INFORMATION
  Report Type: Spontaneous
  Country: SE (occurrence: SE)
  Receive Date: 20181008
  Receipt Date: 20181008
  Transmission Date: 20190205
  Serious: Yes (Other)
  Sender: FDA-Public Use
  Company Number: SE-ALK-ABELLO A/S-2018AA003254

PATIENT

DRUGS (8)
  1. GRAZAX [Suspect]
     Active Substance: PHLEUM PRATENSE POLLEN
     Indication: PRODUCT USED FOR UNKNOWN INDICATION
     Dosage: 75000 SQ-T, QD
     Route: 060
     Dates: start: 20180904, end: 20180915
  2. FLUTIDE [Concomitant]
     Active Substance: FLUTICASONE PROPIONATE
     Dosage: 250 MICROGRAM/DOSE
     Route: 055
  3. MONTELUKAST [Concomitant]
     Active Substance: MONTELUKAST SODIUM
  4. BUDESONIDE W/FORMOTEROL FUMARATE [Concomitant]
     Active Substance: BUDESONIDE\FORMOTEROL FUMARATE
     Route: 055
  5. LOMUDAL [Concomitant]
     Dosage: 40 MG/ML
     Route: 047
  6. MOMETASONE [Concomitant]
     Active Substance: MOMETASONE
  7. ALLOPURINOL. [Concomitant]
     Active Substance: ALLOPURINOL
  8. DESLORATADINE. [Concomitant]
     Active Substance: DESLORATADINE

REACTIONS (3)
  - Asthma [Not Recovered/Not Resolved]
  - Rhinitis allergic [Not Recovered/Not Resolved]
  - Condition aggravated [Not Recovered/Not Resolved]

NARRATIVE: CASE EVENT DATE: 20180905
